FAERS Safety Report 24549649 (Version 2)
Quarter: 2025Q1

REPORT INFORMATION
  Report Type: Report from Study
  Country: CO (occurrence: CO)
  Receive Date: 20241025
  Receipt Date: 20250117
  Transmission Date: 20250409
  Serious: Yes (Death, Hospitalization)
  Sender: NOVARTIS
  Company Number: CO-002147023-NVSC2024CO033396

PATIENT
  Age: 82 Year
  Sex: Male
  Weight: 73 kg

DRUGS (3)
  1. ELTROMBOPAG OLAMINE [Suspect]
     Active Substance: ELTROMBOPAG OLAMINE
     Indication: Immune thrombocytopenia
     Dosage: 25 MG, QD
     Route: 048
     Dates: start: 20231122
  2. ELTROMBOPAG OLAMINE [Suspect]
     Active Substance: ELTROMBOPAG OLAMINE
     Indication: Thrombocytopenia
     Dosage: 50 MG, QD
     Route: 048
  3. ELTROMBOPAG OLAMINE [Suspect]
     Active Substance: ELTROMBOPAG OLAMINE
     Dosage: 25 MG, QD
     Route: 065

REACTIONS (22)
  - Platelet count decreased [Fatal]
  - Myeloid leukaemia [Fatal]
  - Respiratory disorder [Fatal]
  - Brain hypoxia [Fatal]
  - Haemoglobin decreased [Fatal]
  - Deep vein thrombosis [Fatal]
  - Pain in extremity [Fatal]
  - Red blood cell count decreased [Fatal]
  - Platelet count increased [Fatal]
  - Fatigue [Fatal]
  - Asthenia [Fatal]
  - Back pain [Fatal]
  - Influenza [Fatal]
  - Respiratory tract congestion [Fatal]
  - Decreased appetite [Fatal]
  - Drug intolerance [Fatal]
  - Full blood count abnormal [Unknown]
  - Platelet disorder [Unknown]
  - Chest discomfort [Unknown]
  - Cardiac disorder [Unknown]
  - Malaise [Unknown]
  - Illness [Unknown]

NARRATIVE: CASE EVENT DATE: 20241003
